FAERS Safety Report 4320977-2 (Version None)
Quarter: 2004Q1

REPORT INFORMATION
  Report Type: 
  Country: None (occurrence: None)
  Receive Date: 20040318
  Receipt Date: 20040309
  Transmission Date: 20041129
  Serious: Yes (Hospitalization)
  Sender: FDA-Public Use
  Company Number: 204705

PATIENT
  Age: 83 Year
  Sex: Female

DRUGS (10)
  1. HERCEPTIN [Suspect]
     Indication: BREAST CANCER METASTATIC
     Dosage: 345 MG, Q3W, INTRAVENOUS
     Route: 042
     Dates: end: 20040119
  2. AREDIA [Suspect]
     Dates: end: 20040201
  3. ATENOLOL [Concomitant]
  4. LIPITOR [Concomitant]
  5. ASPIRIN [Concomitant]
  6. CALCIUM (CALCIUM NOS) [Concomitant]
  7. VITAMIN A (NATURAL) CAP [Concomitant]
  8. VITAMIN E [Concomitant]
  9. PRILOSEC [Concomitant]
  10. NTG (NITROGLYCERIN) [Concomitant]

REACTIONS (2)
  - DIABETES MELLITUS [None]
  - NEPHROTIC SYNDROME [None]
